FAERS Safety Report 6916580-8 (Version None)
Quarter: 2010Q3

REPORT INFORMATION
  Report Type: 
  Country: None (occurrence: None)
  Receive Date: 20100810
  Receipt Date: 20100806
  Transmission Date: 20110219
  Serious: Yes (Life-Threatening)
  Sender: FDA-Public Use
  Company Number: ES-ROXANE LABORATORIES, INC.-2010-RO-00991RO

PATIENT
  Age: 86 Year
  Sex: Female

DRUGS (1)
  1. DIGOXIN [Suspect]
     Dosage: 0.5 MG

REACTIONS (2)
  - MEDICATION ERROR [None]
  - THERAPEUTIC AGENT TOXICITY [None]
